FAERS Safety Report 18383556 (Version 3)
Quarter: 2020Q4

REPORT INFORMATION
  Report Type: Spontaneous
  Country: US (occurrence: US)
  Receive Date: 20201014
  Receipt Date: 20201217
  Transmission Date: 20210114
  Serious: No
  Sender: FDA-Public Use
  Company Number: US-PFIZER INC-2020213857

PATIENT
  Age: 56 Year
  Sex: Female

DRUGS (5)
  1. LYRICA [Suspect]
     Active Substance: PREGABALIN
     Dosage: 75 MG, 2X/DAY
     Route: 048
  2. LYRICA [Suspect]
     Active Substance: PREGABALIN
     Dosage: 75 MG, 1X/DAY, (1 PO (ORAL) QHS (EVERY NIGHT AT BED TIME)
     Route: 048
  3. LYRICA [Suspect]
     Active Substance: PREGABALIN
     Dosage: 50 MG, 4X/DAY (Q6H (EVERY 6 HOURS) )
     Route: 048
  4. LYRICA [Suspect]
     Active Substance: PREGABALIN
     Dosage: 100 MG, 1X/DAY, (1 PO (ORAL) QHS (EVERY NIGHT AT BED TIME)
     Route: 048
  5. LYRICA [Suspect]
     Active Substance: PREGABALIN
     Dosage: 50 MG, 2X/DAY
     Route: 048

REACTIONS (2)
  - Feeling abnormal [Unknown]
  - Neuralgia [Unknown]
